FAERS Safety Report 8406602-X (Version None)
Quarter: 2012Q2

REPORT INFORMATION
  Report Type: 
  Country: None (occurrence: None)
  Receive Date: 20120529
  Receipt Date: 19991008
  Transmission Date: 20120825
  Serious: Yes (Life-Threatening, Hospitalization)
  Sender: FDA-Public Use
  Company Number: 02100-JPN-99-0138

PATIENT
  Age: 69 Year
  Sex: Female
  Weight: 60.3 kg

DRUGS (2)
  1. NORVASC [Suspect]
     Dosage: ORAL
     Route: 048
     Dates: start: 19991006, end: 19991006
  2. PLETAL [Suspect]
     Dosage: ORAL
     Route: 048
     Dates: start: 19991006, end: 19991006

REACTIONS (6)
  - HYPOTHYROIDISM [None]
  - RENAL FAILURE [None]
  - SUICIDE ATTEMPT [None]
  - HYPOURICAEMIA [None]
  - HAEMODIALYSIS [None]
  - OVERDOSE [None]
